FAERS Safety Report 6115669-3 (Version None)
Quarter: 2009Q1

REPORT INFORMATION
  Report Type: 
  Country: None (occurrence: None)
  Receive Date: 20090313
  Receipt Date: 20090304
  Transmission Date: 20090719
  Serious: Yes (Life-Threatening, Hospitalization, Other)
  Sender: FDA-Public Use
  Company Number: US-ABBOTT-08P-163-0493278-01

PATIENT
  Sex: Female
  Weight: 128 kg

DRUGS (15)
  1. HUMIRA [Suspect]
     Indication: RHEUMATOID ARTHRITIS
     Route: 058
     Dates: start: 20010219, end: 20081215
  2. HUMIRA [Suspect]
     Dates: start: 20090116
  3. HUMIRA [Suspect]
     Dates: start: 20090116
  4. SLOW-FE [Concomitant]
     Indication: ANAEMIA
     Route: 048
     Dates: start: 19990301
  5. TYLENOL (CAPLET) [Concomitant]
     Indication: HEADACHE
     Route: 048
     Dates: start: 19910101, end: 20070729
  6. TYLENOL (CAPLET) [Concomitant]
     Dates: start: 20070806
  7. SERTRALINE [Concomitant]
     Indication: DEPRESSION
     Route: 048
     Dates: start: 20001227
  8. FOLIC ACID [Concomitant]
     Indication: VITAMIN SUPPLEMENTATION
     Route: 048
     Dates: start: 19971219
  9. ZOLPIDEM TARTRATE [Concomitant]
     Indication: INSOMNIA
     Route: 048
     Dates: start: 20010406
  10. VOLTAREN [Concomitant]
     Indication: ARTHRALGIA
     Route: 048
     Dates: start: 20080415
  11. VOLTAREN [Concomitant]
     Indication: INTERVERTEBRAL DISC DISORDER
  12. TYLENOL COLD AND SINUS [Concomitant]
     Indication: ACUTE SINUSITIS
     Route: 048
     Dates: start: 20080610
  13. TYLENOL (CAPLET) [Concomitant]
     Indication: PAIN
     Route: 048
     Dates: start: 20070806
  14. FOLIC ACID [Concomitant]
     Indication: RHEUMATOID ARTHRITIS
     Route: 048
     Dates: start: 19971209
  15. METHOTREXATE [Concomitant]
     Indication: RHEUMATOID ARTHRITIS
     Route: 048
     Dates: start: 20071016, end: 20081212

REACTIONS (3)
  - ACUTE RESPIRATORY FAILURE [None]
  - INTRACRANIAL ANEURYSM [None]
  - SUBARACHNOID HAEMORRHAGE [None]
